FAERS Safety Report 15457241 (Version 1)
Quarter: 2018Q4

REPORT INFORMATION
  Report Type: Spontaneous
  Country: US (occurrence: US)
  Receive Date: 20181002
  Receipt Date: 20181002
  Transmission Date: 20190204
  Serious: Yes (Other)
  Sender: FDA-Public Use
  Company Number: US-FOUNDATIONCONSUMERHC-2018-US-016733

PATIENT
  Age: 42 Year
  Sex: Female

DRUGS (4)
  1. PROZAC [Concomitant]
     Active Substance: FLUOXETINE HYDROCHLORIDE
  2. WELLBUTRIN [Concomitant]
     Active Substance: BUPROPION HYDROCHLORIDE
  3. AFTERA [Suspect]
     Active Substance: LEVONORGESTREL
     Indication: POST COITAL CONTRACEPTION
     Dosage: 1.5MG
     Route: 048
     Dates: start: 20180927, end: 20180927
  4. VALIUM [Concomitant]
     Active Substance: DIAZEPAM

REACTIONS (5)
  - Suicidal ideation [Unknown]
  - Confusional state [Not Recovered/Not Resolved]
  - Intentional self-injury [Recovered/Resolved]
  - Intentional product misuse [Recovered/Resolved]
  - Aggression [Not Recovered/Not Resolved]

NARRATIVE: CASE EVENT DATE: 20180927
